FAERS Safety Report 25431863 (Version 1)
Quarter: 2025Q2

REPORT INFORMATION
  Report Type: Spontaneous
  Country: GB (occurrence: GB)
  Receive Date: 20250613
  Receipt Date: 20250613
  Transmission Date: 20250716
  Serious: Yes (Hospitalization)
  Sender: B BRAUN
  Company Number: GB-B.Braun Medical Inc.-2178609

PATIENT
  Age: 57 Year
  Sex: Male

DRUGS (5)
  1. ACETAMINOPHEN [Suspect]
     Active Substance: ACETAMINOPHEN
  2. CLOZAPINE [Suspect]
     Active Substance: CLOZAPINE
  3. INSULIN NOS [Suspect]
     Active Substance: INSULIN NOS
  4. PROCYCLIDINE [Suspect]
     Active Substance: PROCYCLIDINE
  5. DIAZEPAM [Suspect]
     Active Substance: DIAZEPAM

REACTIONS (2)
  - Overdose [Not Recovered/Not Resolved]
  - Hypoglycaemia [Not Recovered/Not Resolved]
